FAERS Safety Report 15138833 (Version 1)
Quarter: 2018Q3

REPORT INFORMATION
  Report Type: Spontaneous
  Country: IN (occurrence: IN)
  Receive Date: 20180713
  Receipt Date: 20180713
  Transmission Date: 20181010
  Serious: No
  Sender: FDA-Public Use
  Company Number: IN-LUPIN LIMITED-2018-00289

PATIENT
  Age: 4 Month
  Sex: Female

DRUGS (2)
  1. ODOXIL SUSP DRY [Suspect]
     Active Substance: CEFADROXIL
     Indication: RASH
     Dosage: 10 DROPS TWICE
     Route: 048
     Dates: start: 20180114
  2. ZUKAMIN                            /00014501/ [Concomitant]
     Indication: NASOPHARYNGITIS
     Dosage: 10 DROPS, BID
     Route: 048
     Dates: start: 201801

REACTIONS (2)
  - No adverse event [Unknown]
  - Prescription drug used without a prescription [Unknown]

NARRATIVE: CASE EVENT DATE: 20180114
